FAERS Safety Report 8764973 (Version 1)
Quarter: 2012Q4

REPORT INFORMATION
  Report Type: 
  Country: NL (occurrence: NL)
  Receive Date: 20120902
  Receipt Date: 20120902
  Transmission Date: 20130627
  Serious: Yes (Other)
  Sender: FDA-Public Use
  Company Number: NL-AMGEN-NLDSP2012009634

PATIENT
  Age: 30 Year
  Sex: Female

DRUGS (7)
  1. ENBREL [Suspect]
     Indication: RHEUMATOID ARTHRITIS
     Dosage: 50 mg, weekly
     Dates: start: 20110901
  2. PREDNISON [Concomitant]
     Dosage: UNK
  3. PLAQUENIL                          /00072602/ [Concomitant]
     Dosage: UNK
  4. BRUFEN                             /00109201/ [Concomitant]
     Dosage: UNK
  5. SALAZOPYRINE [Concomitant]
     Dosage: UNK
  6. SULFASALAZINE [Concomitant]
     Dosage: UNK
  7. IRON [Concomitant]
     Dosage: UNK

REACTIONS (5)
  - Contusion [Not Recovered/Not Resolved]
  - Alopecia [Not Recovered/Not Resolved]
  - Sjogren^s syndrome [Not Recovered/Not Resolved]
  - Rash [Not Recovered/Not Resolved]
  - Pruritus [Not Recovered/Not Resolved]
